FAERS Safety Report 17538914 (Version 1)
Quarter: 2020Q1

REPORT INFORMATION
  Report Type: Spontaneous
  Country: US (occurrence: US)
  Receive Date: 20200313
  Receipt Date: 20200313
  Transmission Date: 20200409
  Serious: Yes (Disabling)
  Sender: FDA-Public Use
  Company Number: None

PATIENT
  Age: 32 Year
  Sex: Female
  Weight: 95.85 kg

DRUGS (1)
  1. ACETAZOLAMIDE. [Suspect]
     Active Substance: ACETAZOLAMIDE
     Indication: IDIOPATHIC INTRACRANIAL HYPERTENSION
     Dosage: ?          QUANTITY:42 CAPSULE(S);?
     Route: 048
     Dates: start: 20200311, end: 20200313

REACTIONS (5)
  - Mood swings [None]
  - Peripheral swelling [None]
  - Fatigue [None]
  - Intracranial pressure increased [None]
  - Headache [None]

NARRATIVE: CASE EVENT DATE: 20200311
